FAERS Safety Report 7330901-6 (Version None)
Quarter: 2011Q1

REPORT INFORMATION
  Report Type: 
  Country: None (occurrence: None)
  Receive Date: 20110304
  Receipt Date: 20110217
  Transmission Date: 20110831
  Serious: Yes (Hospitalization)
  Sender: FDA-Public Use
  Company Number: US-CELGENEUS-163-21880-11011297

PATIENT
  Sex: Female
  Weight: 77.27 kg

DRUGS (10)
  1. CLARITIN [Concomitant]
     Route: 065
  2. ZOMETA [Concomitant]
     Route: 065
  3. PROZAC [Concomitant]
     Route: 065
  4. TRAZODONE HCL [Concomitant]
     Route: 065
  5. NEXIUM [Concomitant]
     Route: 065
  6. DECADRON [Concomitant]
     Route: 065
  7. ADVAIR DISKUS 100/50 [Concomitant]
     Route: 065
  8. MULTI-VITAMIN [Concomitant]
     Route: 065
  9. ASPIRIN [Concomitant]
     Route: 065
  10. REVLIMID [Suspect]
     Indication: MULTIPLE MYELOMA
     Dosage: 25 MILLIGRAM
     Route: 048
     Dates: start: 20090827

REACTIONS (1)
  - PNEUMONIA [None]
